FAERS Safety Report 24004397 (Version 1)
Quarter: 2024Q2

REPORT INFORMATION
  Report Type: Spontaneous
  Country: DE (occurrence: DE)
  Receive Date: 20240624
  Receipt Date: 20240624
  Transmission Date: 20240716
  Serious: Yes (Hospitalization, Other)
  Sender: FDA-Public Use
  Company Number: DE-AMGEN-DEUSP2022159817

PATIENT
  Age: 70 Year
  Sex: Female
  Weight: 78 kg

DRUGS (18)
  1. LETROZOLE [Suspect]
     Active Substance: LETROZOLE
     Indication: Breast cancer
     Dosage: 2 MILLIGRAM, ONCE A DAY
     Route: 065
     Dates: start: 20210527
  2. PALBOCICLIB [Suspect]
     Active Substance: PALBOCICLIB
     Indication: Breast cancer
     Dosage: 125 MILLIGRAM, DAILY  FROM DAY 1 TO DAY 21, EVERY 28 DAYS CYCLE()
     Route: 048
     Dates: start: 20210531, end: 20211107
  3. PALBOCICLIB [Suspect]
     Active Substance: PALBOCICLIB
     Dosage: 100 MILLIGRAM, DAILY FROM DAY 1 TO DAY 21, EVERY 28 DAYS CYCLE
     Route: 048
     Dates: start: 20211115
  4. XGEVA [Suspect]
     Active Substance: DENOSUMAB
     Indication: Prophylaxis
     Dosage: 120 MILLIGRAM, EVERY MONTH
     Route: 058
     Dates: start: 20211013, end: 20220414
  5. XGEVA [Suspect]
     Active Substance: DENOSUMAB
     Dosage: 120 MILLIGRAM, EVERY MONTH
     Route: 058
     Dates: start: 202209
  6. CALCIVIT D [Concomitant]
     Indication: Prophylaxis
     Dosage: UNK
     Route: 048
     Dates: start: 20211008
  7. ZOMETA [Concomitant]
     Active Substance: ZOLEDRONIC ACID
     Indication: Prophylaxis
     Dosage: UNK
     Route: 042
  8. BROMAZEPAM [Concomitant]
     Active Substance: BROMAZEPAM
     Indication: Sleep disorder
     Dosage: UNK
     Route: 048
  9. PANTOZOL [Concomitant]
     Active Substance: PANTOPRAZOLE SODIUM
     Indication: Prophylaxis
     Dosage: UNK
     Route: 048
  10. CHLORPROTHIXENE HYDROCHLORIDE [Concomitant]
     Active Substance: CHLORPROTHIXENE HYDROCHLORIDE
     Indication: Sleep disorder
     Dosage: UNK
     Route: 048
  11. OPIPRAMOL [Concomitant]
     Active Substance: OPIPRAMOL
     Indication: Sleep disorder
     Dosage: UNK
     Route: 048
  12. PROPRANOLOL [Concomitant]
     Active Substance: PROPRANOLOL HYDROCHLORIDE
     Indication: Hypertension
     Dosage: UNK
     Route: 048
  13. TORSEMIDE [Concomitant]
     Active Substance: TORSEMIDE
     Indication: Hypertension
     Dosage: UNK
     Route: 048
     Dates: end: 20220215
  14. TORSEMIDE [Concomitant]
     Active Substance: TORSEMIDE
     Dosage: UNK
     Route: 048
     Dates: start: 20220216
  15. SODIUM PICOSULFATE [Concomitant]
     Active Substance: SODIUM PICOSULFATE
     Indication: Prophylaxis
     Dosage: UNK
     Route: 048
     Dates: start: 20211013
  16. MOVICOL [Concomitant]
     Active Substance: POLYETHYLENE GLYCOL 3350\POTASSIUM CHLORIDE\SODIUM BICARBONATE\SODIUM CHLORIDE
     Indication: Prophylaxis
     Dosage: UNK
     Route: 048
     Dates: start: 20211022
  17. CHOLECALCIFEROL [Concomitant]
     Active Substance: CHOLECALCIFEROL
     Indication: Prophylaxis
     Dosage: UNK
     Route: 048
  18. Novalgin [Concomitant]
     Indication: Prophylaxis
     Dosage: UNK
     Route: 048
     Dates: start: 20210607

REACTIONS (1)
  - Osteonecrosis of jaw [Recovered/Resolved]

NARRATIVE: CASE EVENT DATE: 20220501
